FAERS Safety Report 7423542-3 (Version None)
Quarter: 2011Q2

REPORT INFORMATION
  Report Type: 
  Country: None (occurrence: None)
  Receive Date: 20110413
  Receipt Date: 20110413
  Transmission Date: 20111010
  Serious: Yes (Hospitalization)
  Sender: FDA-Public Use
  Company Number: None

PATIENT
  Age: 62 Year
  Sex: Male
  Weight: 105.1 kg

DRUGS (1)
  1. RITUXIMAB [Suspect]
     Dosage: 75 MG OTHER IV
     Route: 042
     Dates: start: 20110104, end: 20110105

REACTIONS (4)
  - CHILLS [None]
  - PARAESTHESIA [None]
  - HYPERHIDROSIS [None]
  - HYPOAESTHESIA [None]
